FAERS Safety Report 5283730-1 (Version None)
Quarter: 2007Q2

REPORT INFORMATION
  Report Type: 
  Country: None (occurrence: None)
  Receive Date: 20070402
  Receipt Date: 20070323
  Transmission Date: 20071010
  Serious: Yes (Life-Threatening, Other)
  Sender: FDA-Public Use
  Company Number: HQWYE478224OCT06

PATIENT
  Sex: Male
  Weight: 77 kg

DRUGS (9)
  1. MYLOTARG [Suspect]
     Indication: ACUTE MYELOID LEUKAEMIA
     Route: 041
     Dates: start: 20060920, end: 20060920
  2. GASTER [Concomitant]
     Indication: PROPHYLAXIS
     Route: 048
     Dates: start: 20060710
  3. PRORENAL [Concomitant]
     Route: 048
     Dates: start: 20060710
  4. ACLARUBICIN HYDROCHLORIDE [Concomitant]
     Indication: ACUTE MYELOID LEUKAEMIA
     Dosage: UNKNOWN
     Route: 042
     Dates: start: 20061003, end: 20061016
  5. MUCOSTA [Concomitant]
     Indication: PROPHYLAXIS
     Route: 048
     Dates: start: 20060710
  6. ZOLPIDEM TARTRATE [Concomitant]
     Indication: INSOMNIA
     Route: 048
     Dates: start: 20060831
  7. CYTARABINE [Concomitant]
     Indication: ACUTE MYELOID LEUKAEMIA
     Dosage: UNKNOWN
     Route: 042
     Dates: start: 20061003, end: 20061016
  8. ETODOLAC [Concomitant]
     Route: 048
     Dates: start: 20060710
  9. BAKTAR [Concomitant]
     Indication: PROPHYLAXIS
     Dosage: 6DF/WEEK
     Route: 048
     Dates: start: 20060710

REACTIONS (15)
  - ACUTE MYELOID LEUKAEMIA [None]
  - BLOOD FIBRINOGEN INCREASED [None]
  - BLOOD LACTATE DEHYDROGENASE INCREASED [None]
  - BLOOD PRESSURE DIASTOLIC INCREASED [None]
  - C-REACTIVE PROTEIN INCREASED [None]
  - CONDITION AGGRAVATED [None]
  - DRUG INEFFECTIVE [None]
  - FIBRIN DEGRADATION PRODUCTS INCREASED [None]
  - NAUSEA [None]
  - NEUTROPHIL COUNT DECREASED [None]
  - PERFORMANCE STATUS DECREASED [None]
  - PLATELET COUNT DECREASED [None]
  - PNEUMONIA [None]
  - PYREXIA [None]
  - WHITE BLOOD CELL COUNT INCREASED [None]
